FAERS Safety Report 7517029-7 (Version None)
Quarter: 2011Q2

REPORT INFORMATION
  Report Type: 
  Country: None (occurrence: None)
  Receive Date: 20110526
  Receipt Date: 20110526
  Transmission Date: 20111010
  Serious: No
  Sender: FDA-Public Use
  Company Number: None

PATIENT

DRUGS (1)
  1. DERMASIL FOR WARTS DERMASIL [Suspect]
     Indication: SKIN PAPILLOMA
     Dosage: DROPS TID TOP
     Route: 061
     Dates: start: 20110520, end: 20110521

REACTIONS (4)
  - SKIN BURNING SENSATION [None]
  - SWELLING [None]
  - ERYTHEMA [None]
  - SKIN REACTION [None]
